FAERS Safety Report 8104571-3 (Version None)
Quarter: 2012Q1

REPORT INFORMATION
  Report Type: 
  Country: None (occurrence: None)
  Receive Date: 20120201
  Receipt Date: 20120127
  Transmission Date: 20120608
  Serious: Yes (Hospitalization, Disabling)
  Sender: FDA-Public Use
  Company Number: US-MERCK-1108USA02813

PATIENT
  Age: 53 Year
  Sex: Female

DRUGS (9)
  1. FOSAMAX [Suspect]
     Route: 048
     Dates: start: 20010201, end: 20060301
  2. CALCIUM (UNSPECIFIED) AND VITAMIN D (UNSPECIFIED) [Concomitant]
     Route: 065
     Dates: start: 19970101
  3. CHONDROITIN SULFATE SODIUM [Concomitant]
     Route: 065
     Dates: start: 19981201, end: 20080101
  4. FOSAMAX PLUS D [Suspect]
     Indication: OSTEOPENIA
     Route: 048
     Dates: start: 20060401, end: 20081201
  5. FOSAMAX [Suspect]
     Route: 048
     Dates: start: 20090101, end: 20100201
  6. MOBIC [Concomitant]
     Route: 065
     Dates: start: 20031101
  7. FOSAMAX [Suspect]
     Indication: OSTEOPENIA
     Route: 048
     Dates: start: 19980130, end: 20010101
  8. GLUCOSAMINE [Concomitant]
     Route: 065
     Dates: start: 19981201, end: 20080101
  9. LORATADINE [Concomitant]
     Route: 065
     Dates: start: 20070101

REACTIONS (12)
  - BACK PAIN [None]
  - BREAST DISORDER FEMALE [None]
  - ADVERSE EVENT [None]
  - HYPERTENSION [None]
  - GASTROOESOPHAGEAL REFLUX DISEASE [None]
  - BLOOD CHOLESTEROL INCREASED [None]
  - FEMUR FRACTURE [None]
  - LOW TURNOVER OSTEOPATHY [None]
  - ANXIETY [None]
  - OSTEOARTHRITIS [None]
  - IMPAIRED HEALING [None]
  - VITAMIN D DEFICIENCY [None]
